FAERS Safety Report 14895931 (Version 6)
Quarter: 2020Q4

REPORT INFORMATION
  Report Type: Spontaneous
  Country: FR (occurrence: FR)
  Receive Date: 20180515
  Receipt Date: 20201110
  Transmission Date: 20210113
  Serious: Yes (Death, Life-Threatening, Hospitalization, Other)
  Sender: FDA-Public Use
  Company Number: FR-AUROBINDO-AUR-APL-2018-025572

PATIENT
  Age: 62 Year
  Sex: Female
  Weight: 40 kg

DRUGS (10)
  1. MYCOPHENOLATE MOFETIL. [Suspect]
     Active Substance: MYCOPHENOLATE MOFETIL
     Indication: IMMUNOSUPPRESSANT DRUG THERAPY
     Dosage: 2 GRAM, ONCE A DAY
     Route: 048
     Dates: start: 20130529, end: 20130614
  2. PROGRAF [Suspect]
     Active Substance: TACROLIMUS
     Indication: IMMUNOSUPPRESSANT DRUG THERAPY
  3. CELLCEPT [Suspect]
     Active Substance: MYCOPHENOLATE MOFETIL\MYCOPHENOLATE MOFETIL HYDROCHLORIDE
     Indication: IMMUNOSUPPRESSANT DRUG THERAPY
  4. TACROLIMUS. [Suspect]
     Active Substance: TACROLIMUS
     Indication: IMMUNOSUPPRESSANT DRUG THERAPY
     Dosage: 5 MILLIGRAM
     Route: 048
     Dates: start: 20130529, end: 20130630
  5. FUROSEMIDE. [Suspect]
     Active Substance: FUROSEMIDE
     Indication: DIURETIC THERAPY
     Dosage: UNK
     Route: 065
  6. SOLU-MEDROL [Suspect]
     Active Substance: METHYLPREDNISOLONE SODIUM SUCCINATE
     Indication: PROPHYLAXIS AGAINST TRANSPLANT REJECTION
     Dosage: 20 MILLIGRAM, ONCE A DAY
     Route: 041
     Dates: start: 20130529, end: 20130630
  7. PREDNISONE. [Suspect]
     Active Substance: PREDNISONE
     Indication: LIVER TRANSPLANT
     Dosage: 20 MILLIGRAM, ONCE A DAY
     Route: 048
     Dates: start: 20130529, end: 20130630
  8. PROGRAF [Suspect]
     Active Substance: TACROLIMUS
     Indication: LIVER TRANSPLANT
     Dosage: 5 MILLIGRAM, ONCE A DAY
     Route: 048
     Dates: start: 20130529, end: 20130630
  9. PREDNISONE. [Suspect]
     Active Substance: PREDNISONE
     Indication: IMMUNOSUPPRESSANT DRUG THERAPY
  10. CELLCEPT [Suspect]
     Active Substance: MYCOPHENOLATE MOFETIL\MYCOPHENOLATE MOFETIL HYDROCHLORIDE
     Indication: LIVER TRANSPLANT
     Dosage: 2 GRAM, ONCE A DAY
     Route: 048
     Dates: start: 20130529, end: 20130614

REACTIONS (21)
  - Renal failure [Fatal]
  - Aspergillus infection [Fatal]
  - Cardiorenal syndrome [Fatal]
  - Hypoxia [Fatal]
  - Cytomegalovirus infection reactivation [Fatal]
  - Pulmonary oedema [Fatal]
  - Coagulopathy [Fatal]
  - Hypovolaemia [Fatal]
  - Toxoplasmosis [Fatal]
  - Respiratory failure [Fatal]
  - Hypercapnia [Fatal]
  - Metabolic disorder [Fatal]
  - Respiratory acidosis [Fatal]
  - Renal impairment [Unknown]
  - Systemic inflammatory response syndrome [Fatal]
  - Acute respiratory distress syndrome [Fatal]
  - Lung disorder [Fatal]
  - Circulatory collapse [Fatal]
  - Death [Fatal]
  - Multiple organ dysfunction syndrome [Fatal]
  - Inflammation [Fatal]

NARRATIVE: CASE EVENT DATE: 201306
